FAERS Safety Report 7605391-6 (Version None)
Quarter: 2011Q3

REPORT INFORMATION
  Report Type: 
  Country: None (occurrence: None)
  Receive Date: 20110705
  Receipt Date: 20110616
  Transmission Date: 20111222
  Serious: Yes (Hospitalization)
  Sender: FDA-Public Use
  Company Number: TCI2011A03588

PATIENT
  Age: 75 Year
  Sex: Male

DRUGS (4)
  1. ACTOS [Suspect]
     Dosage: SEE IMAGE: PER ORAL
     Route: 048
     Dates: start: 20061001
  2. ACTOS [Suspect]
     Dosage: SEE IMAGE: PER ORAL
     Route: 048
     Dates: start: 20090801
  3. ACTOS [Suspect]
     Dosage: SEE IMAGE: PER ORAL
     Route: 048
     Dates: start: 20061201, end: 20081201
  4. ACTOS [Suspect]
     Dosage: SEE IMAGE: PER ORAL
     Route: 048
     Dates: start: 20090201

REACTIONS (4)
  - HAEMATURIA [None]
  - BLADDER CANCER [None]
  - WEIGHT INCREASED [None]
  - LARGE INTESTINE CARCINOMA [None]
